FAERS Safety Report 14287284 (Version 4)
Quarter: 2018Q1

REPORT INFORMATION
  Report Type: Spontaneous
  Country: SE (occurrence: SE)
  Receive Date: 20171214
  Receipt Date: 20180312
  Transmission Date: 20180509
  Serious: Yes (Other)
  Sender: FDA-Public Use
  Company Number: SE-PFIZER INC-2017527858

PATIENT
  Age: 22 Year
  Sex: Female

DRUGS (2)
  1. DALACIN [Suspect]
     Active Substance: CLINDAMYCIN
     Indication: BACTERIAL INFECTION
     Dosage: UNK
     Route: 067
     Dates: start: 20171125
  2. DALACIN [Suspect]
     Active Substance: CLINDAMYCIN
     Indication: VAGINAL INFECTION

REACTIONS (3)
  - Vulvovaginal pain [Recovered/Resolved]
  - Vulvovaginal injury [Recovered/Resolved]
  - Product quality issue [Unknown]

NARRATIVE: CASE EVENT DATE: 20171125
